FAERS Safety Report 24694641 (Version 5)
Quarter: 2025Q3

REPORT INFORMATION
  Report Type: Report from Study
  Country: CA (occurrence: CA)
  Receive Date: 20241204
  Receipt Date: 20250729
  Transmission Date: 20251021
  Serious: Yes (Hospitalization)
  Sender: TAKEDA
  Company Number: CA-TAKEDA-2024TUS120249

PATIENT
  Age: 50 Year
  Sex: Male

DRUGS (12)
  1. VEDOLIZUMAB [Suspect]
     Active Substance: VEDOLIZUMAB
     Indication: Crohn^s disease
  2. VEDOLIZUMAB [Suspect]
     Active Substance: VEDOLIZUMAB
  3. VEDOLIZUMAB [Suspect]
     Active Substance: VEDOLIZUMAB
     Dosage: 300 MILLIGRAM, Q4WEEKS
     Dates: start: 20250516
  4. PANTOPRAZOLE SODIUM [Suspect]
     Active Substance: PANTOPRAZOLE SODIUM
     Indication: Product used for unknown indication
  5. FERROUS FUMARATE [Concomitant]
     Active Substance: FERROUS FUMARATE
     Dosage: UNK UNK, QD
  6. STELARA [Concomitant]
     Active Substance: USTEKINUMAB
  7. PREDNISONE [Concomitant]
     Active Substance: PREDNISONE
  8. COLESTID [Concomitant]
     Active Substance: COLESTIPOL HYDROCHLORIDE
  9. IRON [Concomitant]
     Active Substance: IRON
  10. VITAMINS [Concomitant]
     Active Substance: VITAMINS
  11. VITAMIN D NOS [Concomitant]
     Active Substance: CHOLECALCIFEROL\ERGOCALCIFEROL
  12. BUDESONIDE [Concomitant]
     Active Substance: BUDESONIDE

REACTIONS (3)
  - Anaemia [Unknown]
  - Pallor [Unknown]
  - Blood iron abnormal [Recovered/Resolved]

NARRATIVE: CASE EVENT DATE: 20250711
